FAERS Safety Report 19933526 (Version 2)
Quarter: 2021Q4

REPORT INFORMATION
  Report Type: Spontaneous
  Country: DE (occurrence: None)
  Receive Date: 20211008
  Receipt Date: 20211118
  Transmission Date: 20220303
  Serious: Yes (Hospitalization, Other)
  Sender: FDA-Public Use
  Company Number: 2021A757857

PATIENT
  Age: 27159 Day
  Sex: Female

DRUGS (5)
  1. ACALABRUTINIB [Suspect]
     Active Substance: ACALABRUTINIB
     Indication: Chronic lymphocytic leukaemia
     Route: 048
     Dates: start: 20210709, end: 20210730
  2. DECRISTOL [Concomitant]
  3. SELENASE [Concomitant]
  4. LEVOTHYROXINE SODIUM\POTASSIUM IODIDE [Concomitant]
     Active Substance: LEVOTHYROXINE SODIUM\POTASSIUM IODIDE
  5. CITALOPRAM [Concomitant]
     Active Substance: CITALOPRAM HYDROBROMIDE

REACTIONS (5)
  - Visual acuity reduced [Unknown]
  - Retinal haemorrhage [Not Recovered/Not Resolved]
  - Haematoma [Unknown]
  - Night sweats [Unknown]
  - Myopia [Unknown]

NARRATIVE: CASE EVENT DATE: 20210730
